FAERS Safety Report 8679649 (Version 2)
Quarter: 2013Q1

REPORT INFORMATION
  Report Type: Spontaneous
  Country: US (occurrence: US)
  Receive Date: 20120724
  Receipt Date: 20130215
  Transmission Date: 20140127
  Serious: Yes (Hospitalization, Other)
  Sender: FDA-Public Use
  Company Number: US-ELI_LILLY_AND_COMPANY-US201207004521

PATIENT
  Age: 77 None
  Sex: Female

DRUGS (15)
  1. FORTEO [Suspect]
     Indication: OSTEOPOROSIS
     Dosage: UNK, QD
  2. FORTEO [Suspect]
     Dosage: 20 UG, QD
  3. OXYGEN [Concomitant]
     Indication: PULMONARY ARTERIAL HYPERTENSION
     Dosage: 5 LITERS CONSTANT FLOW AT ALL TIMES
  4. ENALAPRIL [Concomitant]
     Dosage: 5 MG, QD
  5. LEVOTHYROXINE [Concomitant]
     Dosage: 25 UG, QD
  6. FUROSEMIDE [Concomitant]
     Dosage: 40 MG, QD
  7. POTASSIUM CHLORIDE [Concomitant]
     Dosage: 10 MEQ, QD
  8. GABAPENTIN [Concomitant]
     Dosage: 400 MG, BID
  9. OMEPRAZOLE [Concomitant]
     Dosage: 20 MG, BID
  10. TRACLEER [Concomitant]
     Dosage: 125 MG, BID
  11. PENTOXIFYLLINE [Concomitant]
  12. CALCIUM [Concomitant]
     Dosage: 500 MG, TID
  13. GLUCOSAMINE CHONDROITIN [Concomitant]
     Dosage: EFFECTIVE DOSE
  14. OMEGA 3 [Concomitant]
  15. VITAMIN D [Concomitant]
     Dosage: 2000 IU, UNK

REACTIONS (12)
  - Cerebral haemorrhage [Unknown]
  - Subdural haematoma [Recovered/Resolved]
  - Loss of consciousness [Unknown]
  - Road traffic accident [Unknown]
  - Post-traumatic neck syndrome [Unknown]
  - Headache [Unknown]
  - Thinking abnormal [Unknown]
  - Asthenia [Recovering/Resolving]
  - Balance disorder [Unknown]
  - Motor dysfunction [Unknown]
  - Injection site pain [Unknown]
  - Amnesia [Unknown]
